FAERS Safety Report 10134707 (Version 1)
Quarter: 2014Q2

REPORT INFORMATION
  Report Type: Spontaneous
  Country: US (occurrence: US)
  Receive Date: 20140428
  Receipt Date: 20140428
  Transmission Date: 20141212
  Serious: Yes (Hospitalization)
  Sender: FDA-Public Use
  Company Number: US-BAXTER-2014BAX020156

PATIENT
  Age: 62 Year
  Sex: Male

DRUGS (1)
  1. DIANEAL LOW CALCIUM [Suspect]
     Indication: PERITONEAL DIALYSIS
     Route: 033

REACTIONS (4)
  - Road traffic accident [Not Recovered/Not Resolved]
  - Head injury [Not Recovered/Not Resolved]
  - Haemorrhage [Not Recovered/Not Resolved]
  - Coma [Not Recovered/Not Resolved]
